FAERS Safety Report 18958256 (Version 1)
Quarter: 2021Q1

REPORT INFORMATION
  Report Type: Spontaneous
  Country: US (occurrence: US)
  Receive Date: 20210301
  Receipt Date: 20210301
  Transmission Date: 20210420
  Serious: No
  Sender: FDA-Public Use
  Company Number: None

PATIENT
  Age: 46 Year
  Sex: Female

DRUGS (5)
  1. OMEPRAZOLE. [Concomitant]
     Active Substance: OMEPRAZOLE
  2. PREDNISONE. [Concomitant]
     Active Substance: PREDNISONE
  3. ENALAPRIL [Concomitant]
     Active Substance: ENALAPRIL
  4. COSENTYX [Suspect]
     Active Substance: SECUKINUMAB
     Indication: PSORIATIC ARTHROPATHY
     Dosage: WEEKLY FOR 5 WKS, THEN Q28D INJECTION
     Dates: start: 20210128
  5. NAPROXEN. [Concomitant]
     Active Substance: NAPROXEN

REACTIONS (4)
  - Skin exfoliation [None]
  - Erythema [None]
  - Pruritus [None]
  - Rash pruritic [None]

NARRATIVE: CASE EVENT DATE: 20210129
